FAERS Safety Report 14579784 (Version 6)
Quarter: 2019Q2

REPORT INFORMATION
  Report Type: Spontaneous
  Country: FR (occurrence: FR)
  Receive Date: 20180227
  Receipt Date: 20190627
  Transmission Date: 20190711
  Serious: Yes (Other)
  Sender: FDA-Public Use
  Company Number: FR-AMGEN-FRASP2018023586

PATIENT
  Age: 84 Year
  Sex: Female
  Weight: 42 kg

DRUGS (2)
  1. PROLIA [Suspect]
     Active Substance: DENOSUMAB
     Indication: OSTEOPOROSIS
     Dosage: 60 MILLIGRAM, Q6MO
     Route: 058
     Dates: start: 201405
  2. VITAMIN D [Concomitant]
     Active Substance: VITAMIN D NOS
     Dosage: UNK

REACTIONS (18)
  - Skin cancer [Unknown]
  - Body height decreased [Unknown]
  - Spinal pain [Not Recovered/Not Resolved]
  - Lip injury [Unknown]
  - Sleep disorder due to a general medical condition [Not Recovered/Not Resolved]
  - Mental disorder [Unknown]
  - Fear of falling [Not Recovered/Not Resolved]
  - Tendonitis [Unknown]
  - Disability [Not Recovered/Not Resolved]
  - Balance disorder [Not Recovered/Not Resolved]
  - Gingival disorder [Unknown]
  - Tendon rupture [Unknown]
  - Muscle strain [Unknown]
  - Tendon injury [Unknown]
  - Procedural pain [Unknown]
  - Fall [Unknown]
  - Tooth loss [Unknown]
  - Dysgraphia [Unknown]

NARRATIVE: CASE EVENT DATE: 20170421
